FAERS Safety Report 9846115 (Version 1)
Quarter: 2014Q1

REPORT INFORMATION
  Report Type: Spontaneous
  Country: DE (occurrence: None)
  Receive Date: 20140123
  Receipt Date: 20140123
  Transmission Date: 20141002
  Serious: Yes (Other)
  Sender: FDA-Public Use
  Company Number: HRA-CDB20140003

PATIENT
  Age: 39 Year
  Sex: Female

DRUGS (1)
  1. ELLAONE [Suspect]
     Indication: POST COITAL CONTRACEPTION
     Dates: start: 20131021

REACTIONS (6)
  - Pregnancy after post coital contraception [None]
  - No therapeutic response [None]
  - Road traffic accident [None]
  - Abortion spontaneous [None]
  - Exposure during pregnancy [None]
  - Unintended pregnancy [None]
